FAERS Safety Report 15222204 (Version 1)
Quarter: 2018Q3

REPORT INFORMATION
  Report Type: Spontaneous
  Country: US (occurrence: US)
  Receive Date: 20180705
  Receipt Date: 20180705
  Transmission Date: 20181010
  Serious: Yes (Hospitalization)
  Sender: FDA-Public Use
  Company Number: None

PATIENT
  Age: 26 Month
  Sex: Male

DRUGS (2)
  1. NEUPOGEN [Suspect]
     Active Substance: FILGRASTIM
     Indication: RESPIRATORY DISORDER
     Route: 058
     Dates: start: 20180628
  2. NEUPOGEN [Suspect]
     Active Substance: FILGRASTIM
     Indication: GASTROOESOPHAGEAL REFLUX DISEASE
     Route: 058
     Dates: start: 20180628

REACTIONS (1)
  - Pyrexia [None]

NARRATIVE: CASE EVENT DATE: 20180704
